FAERS Safety Report 14712535 (Version 1)
Quarter: 2018Q2

REPORT INFORMATION
  Report Type: Report from Study
  Country: DE (occurrence: DE)
  Receive Date: 20180404
  Receipt Date: 20180404
  Transmission Date: 20180711
  Serious: Yes (Other)
  Sender: FDA-Public Use
  Company Number: DE-ROCHE-2070446

PATIENT
  Age: 62 Year
  Sex: Female

DRUGS (4)
  1. EXVIERA [Suspect]
     Active Substance: DASABUVIR
     Indication: CHRONIC HEPATITIS C
     Dosage: MOST RECENT DOSE ON 02/MAY/2017
     Route: 048
     Dates: start: 20170207
  2. RIBAVIRIN. [Suspect]
     Active Substance: RIBAVIRIN
     Dosage: MOST RECENT DOSE ON 20/FEB/2017
     Route: 048
     Dates: start: 20170213, end: 20170220
  3. RIBAVIRIN. [Suspect]
     Active Substance: RIBAVIRIN
     Indication: CHRONIC HEPATITIS C
     Dosage: 400 MG, QD
     Route: 048
     Dates: start: 20170207, end: 20170210
  4. VIEKIRAX [Suspect]
     Active Substance: OMBITASVIR\PARITAPREVIR\RITONAVIR
     Indication: CHRONIC HEPATITIS C
     Dosage: MOST RECENT DOSE ON 02/MAY/2017
     Route: 048
     Dates: start: 20170207

REACTIONS (9)
  - Nausea [Unknown]
  - Dysphagia [Unknown]
  - General physical health deterioration [Unknown]
  - Fatigue [Unknown]
  - Dyspepsia [Unknown]
  - Headache [Unknown]
  - Vomiting [Unknown]
  - Mycosis fungoides [Unknown]
  - Pruritus [Unknown]

NARRATIVE: CASE EVENT DATE: 20170210
